FAERS Safety Report 12242702 (Version 1)
Quarter: 2016Q2

REPORT INFORMATION
  Report Type: Spontaneous
  Country: CN (occurrence: CN)
  Receive Date: 20160406
  Receipt Date: 20160406
  Transmission Date: 20160815
  Serious: Yes (Hospitalization)
  Sender: FDA-Public Use
  Company Number: CN-FRESENIUS KABI-FK201601712

PATIENT
  Age: 16 Year
  Sex: Female

DRUGS (3)
  1. BLEOMYCIN [Suspect]
     Active Substance: BLEOMYCIN SULFATE
     Indication: BENIGN OVARIAN TUMOUR
     Route: 065
  2. CISPLATIN (MANUFACTURER UNKNOWN) [Suspect]
     Active Substance: CISPLATIN
     Indication: BENIGN OVARIAN TUMOUR
     Route: 065
  3. ETOPOSIDE (MANUFACTURER UNKNOWN) [Suspect]
     Active Substance: ETOPOSIDE
     Indication: BENIGN OVARIAN TUMOUR
     Route: 065

REACTIONS (1)
  - Teratoma [Recovered/Resolved]
